FAERS Safety Report 10648989 (Version 1)
Quarter: 2014Q4

REPORT INFORMATION
  Report Type: Spontaneous
  Country: US (occurrence: US)
  Receive Date: 20141212
  Receipt Date: 20141212
  Transmission Date: 20150529
  Serious: Yes (Hospitalization)
  Sender: FDA-Public Use
  Company Number: US-SA-2014SA169594

PATIENT
  Age: 13 Month
  Sex: Male

DRUGS (2)
  1. THYMOGLOBULIN [Suspect]
     Active Substance: LAPINE T-LYMPHOCYTE IMMUNE GLOBULIN
     Indication: HEART TRANSPLANT
     Route: 065
  2. THYMOGLOBULIN [Suspect]
     Active Substance: LAPINE T-LYMPHOCYTE IMMUNE GLOBULIN
     Indication: HEART TRANSPLANT
     Dosage: PATIENT RECEIVED HALF DOSE POST-OPERATIVELY
     Route: 065
     Dates: start: 201411

REACTIONS (4)
  - Platelet count decreased [Not Recovered/Not Resolved]
  - T-lymphocyte count abnormal [Not Recovered/Not Resolved]
  - Cardiac disorder [Unknown]
  - B-lymphocyte abnormalities [Not Recovered/Not Resolved]

NARRATIVE: CASE EVENT DATE: 2014
